FAERS Safety Report 13899484 (Version 1)
Quarter: 2017Q3

REPORT INFORMATION
  Report Type: Spontaneous
  Country: US (occurrence: US)
  Receive Date: 20170823
  Receipt Date: 20170823
  Transmission Date: 20171127
  Serious: No
  Sender: FDA-Public Use
  Company Number: US-JAZZ-2017-US-008139

PATIENT
  Sex: Female

DRUGS (42)
  1. XOPENEX [Concomitant]
     Active Substance: LEVALBUTEROL HYDROCHLORIDE
  2. ROBAXIN [Concomitant]
     Active Substance: METHOCARBAMOL
  3. MAXALT [Concomitant]
     Active Substance: RIZATRIPTAN BENZOATE
  4. NAPROXEN SODIUM. [Concomitant]
     Active Substance: NAPROXEN SODIUM
  5. ESGIC [Concomitant]
     Active Substance: ACETAMINOPHEN\BUTALBITAL\CAFFEINE
  6. VIVAGLOBIN [Concomitant]
     Active Substance: HUMAN IMMUNOGLOBULIN G
  7. AMITIZA [Concomitant]
     Active Substance: LUBIPROSTONE
  8. ZONISAMIDE. [Concomitant]
     Active Substance: ZONISAMIDE
  9. IBUPROFEN. [Concomitant]
     Active Substance: IBUPROFEN
  10. PULMICORT TURBUHALER [Concomitant]
     Active Substance: BUDESONIDE
  11. XYREM [Suspect]
     Active Substance: SODIUM OXYBATE
     Dosage: DOSE ADJUSTMENT
     Route: 048
     Dates: start: 200712, end: 201211
  12. PROPRANOLOL [Concomitant]
     Active Substance: PROPRANOLOL HYDROCHLORIDE
  13. CYCLOBENZAPRINE HCL [Concomitant]
     Active Substance: CYCLOBENZAPRINE HYDROCHLORIDE
  14. LEVOCARNITINE. [Concomitant]
     Active Substance: LEVOCARNITINE
  15. NUVIGIL [Concomitant]
     Active Substance: ARMODAFINIL
  16. HYDROCODONE [Concomitant]
     Active Substance: HYDROCODONE
  17. PREVACID [Concomitant]
     Active Substance: LANSOPRAZOLE
  18. REGLAN [Concomitant]
     Active Substance: METOCLOPRAMIDE HYDROCHLORIDE
  19. MIDODRINE HCL [Concomitant]
     Active Substance: MIDODRINE HYDROCHLORIDE
  20. PROVIGIL [Concomitant]
     Active Substance: MODAFINIL
  21. ZANAFLEX [Concomitant]
     Active Substance: TIZANIDINE HYDROCHLORIDE
  22. XYREM [Suspect]
     Active Substance: SODIUM OXYBATE
     Indication: NARCOLEPSY
     Dosage: 2.25G, BID
     Route: 048
     Dates: start: 200708, end: 200710
  23. LEVOTHYROXINE SODIUM. [Concomitant]
     Active Substance: LEVOTHYROXINE SODIUM
  24. METOCLOPRAMIDE. [Concomitant]
     Active Substance: METOCLOPRAMIDE
  25. ADVAIR HFA [Concomitant]
     Active Substance: FLUTICASONE PROPIONATE\SALMETEROL XINAFOATE
  26. BENADRYL [Concomitant]
     Active Substance: DIPHENHYDRAMINE HYDROCHLORIDE
  27. TOPAMAX [Concomitant]
     Active Substance: TOPIRAMATE
  28. ZOFRAN [Concomitant]
     Active Substance: ONDANSETRON HYDROCHLORIDE
  29. XYREM [Suspect]
     Active Substance: SODIUM OXYBATE
     Dosage: 1.5G, BID
     Route: 048
     Dates: start: 201403, end: 2014
  30. ISOMETHEPTENE DICHLORAL APAP [Concomitant]
  31. HYDROCODONE BITARTRATE. [Concomitant]
     Active Substance: HYDROCODONE BITARTRATE
  32. GUAIFENESIN. [Concomitant]
     Active Substance: GUAIFENESIN
  33. MIRALAX [Concomitant]
     Active Substance: POLYETHYLENE GLYCOL 3350
  34. VERAMYST [Concomitant]
     Active Substance: FLUTICASONE FUROATE
  35. ZYRTEC [Concomitant]
     Active Substance: CETIRIZINE HYDROCHLORIDE
  36. XYREM [Suspect]
     Active Substance: SODIUM OXYBATE
     Dosage: 4.5G, BID
     Route: 048
     Dates: start: 201211, end: 2012
  37. POTASSIUM CL [Concomitant]
     Active Substance: POTASSIUM CHLORIDE
  38. ACETAZOLAMIDE. [Concomitant]
     Active Substance: ACETAZOLAMIDE
  39. CALCIUM CHLORIDE. [Concomitant]
     Active Substance: CALCIUM CHLORIDE
  40. FLUDROCORTISONE [Concomitant]
     Active Substance: FLUDROCORTISONE
  41. METHYLPHENIDATE. [Concomitant]
     Active Substance: METHYLPHENIDATE
  42. SINGULAIR [Concomitant]
     Active Substance: MONTELUKAST SODIUM

REACTIONS (4)
  - Sodium retention [Unknown]
  - Nausea [Unknown]
  - Swelling [Unknown]
  - Abdominal distension [Unknown]
